FAERS Safety Report 8411043-5 (Version None)
Quarter: 2012Q2

REPORT INFORMATION
  Report Type: 
  Country: None (occurrence: None)
  Receive Date: 20120605
  Receipt Date: 20120521
  Transmission Date: 20120825
  Serious: Yes (Death, Other)
  Sender: FDA-Public Use
  Company Number: US-TEVA-308731USA

PATIENT
  Sex: Female
  Weight: 63.106 kg

DRUGS (31)
  1. NUEDEXTA [Interacting]
     Indication: CRYING
     Dosage: 20/10 MG
     Route: 048
     Dates: start: 20111026, end: 20111028
  2. TRAZODONE HCL [Interacting]
     Indication: DEPRESSION
     Route: 048
     Dates: start: 20090326, end: 20111018
  3. DULOXETINE HYDROCHLORIDE [Interacting]
     Dosage: EVERY OTHER DAY
     Route: 048
     Dates: start: 20111019, end: 20111025
  4. AZILECT [Interacting]
     Dosage: 1 MILLIGRAM;
     Route: 048
     Dates: start: 20111014, end: 20111020
  5. AZILECT [Interacting]
     Dosage: 1 MILLIGRAM;
     Route: 048
     Dates: start: 20110320, end: 20111013
  6. TRAZODONE HCL [Interacting]
     Indication: ANXIETY
     Dosage: 25 MILLIGRAM;
     Route: 048
     Dates: start: 20110205, end: 20111013
  7. TRAZODONE HCL [Interacting]
     Dosage: 50 MILLIGRAM;
     Route: 048
     Dates: start: 20111014, end: 20111020
  8. ROPINIROLE HYDROCHLORIDE [Concomitant]
     Indication: PARKINSON'S DISEASE
     Dates: start: 20090320, end: 20111028
  9. ACETAMINOPHEN [Concomitant]
     Indication: PAIN
     Dates: start: 20091217, end: 20111028
  10. MULTI-VITAMIN [Concomitant]
     Dates: start: 20101111, end: 20111028
  11. WARFARIN [Concomitant]
     Route: 048
     Dates: start: 20111004, end: 20111029
  12. BISACODYL [Concomitant]
     Dates: start: 20090320, end: 20111028
  13. SENOKOT [Concomitant]
     Dates: start: 20110524, end: 20111028
  14. POLYCARBOPHIL CALCIUM [Concomitant]
     Dates: start: 20110606, end: 20111028
  15. MAGNESIUM HYDROXIDE TAB [Concomitant]
     Dates: start: 20090320, end: 20111029
  16. TRAZODONE HCL [Interacting]
     Dosage: 50 MILLIGRAM;
     Route: 048
     Dates: start: 20110302, end: 20111013
  17. TRAZODONE HCL [Interacting]
     Dosage: 25 MILLIGRAM;
     Route: 048
     Dates: start: 20111021, end: 20111027
  18. DULOXETINE HYDROCHLORIDE [Interacting]
     Dosage: 30 MILLIGRAM;
     Route: 048
     Dates: start: 20111014, end: 20111017
  19. RISPERIDONE [Concomitant]
     Dates: start: 20110610, end: 20111030
  20. WARFARIN [Concomitant]
     Route: 048
     Dates: start: 20111018, end: 20111028
  21. AZILECT [Suspect]
     Indication: PARKINSON'S DISEASE
     Dosage: 1 MILLIGRAM;
     Route: 048
     Dates: start: 20111007, end: 20111013
  22. DULOXETINE HYDROCHLORIDE [Interacting]
     Dosage: 30 MILLIGRAM;
     Route: 048
     Dates: start: 20111028, end: 20111028
  23. SINEMET [Concomitant]
     Indication: PARKINSON'S DISEASE
     Dosage: 25/100 MG
     Dates: start: 20090320, end: 20111028
  24. NUEDEXTA [Interacting]
     Indication: DEPRESSION
  25. DULOXETINE HYDROCHLORIDE [Interacting]
     Indication: DEPRESSION
     Dosage: 60 MILLIGRAM;
     Route: 048
     Dates: start: 20110915, end: 20111013
  26. DULOXETINE HYDROCHLORIDE [Interacting]
     Dosage: 30 MILLIGRAM;
     Route: 048
     Dates: start: 20111025, end: 20111025
  27. RISPERIDONE [Concomitant]
     Indication: DEMENTIA
     Dates: start: 20090912, end: 20111028
  28. ACETAMINOPHEN [Concomitant]
     Dates: start: 20010307, end: 20111028
  29. WARFARIN [Concomitant]
     Indication: ATRIAL FIBRILLATION
     Route: 048
     Dates: start: 20110929, end: 20111003
  30. NITROGLYCERIN [Concomitant]
     Route: 062
     Dates: start: 20100630, end: 20111030
  31. WARFARIN SODIUM [Concomitant]
     Dates: start: 20111005, end: 20111017

REACTIONS (9)
  - DRUG INTERACTION [None]
  - SEROTONIN SYNDROME [None]
  - PYREXIA [None]
  - DYSSTASIA [None]
  - COMA [None]
  - UNRESPONSIVE TO STIMULI [None]
  - DEATH [None]
  - BLOOD ELECTROLYTES ABNORMAL [None]
  - BLOOD PRESSURE INCREASED [None]
